FAERS Safety Report 6168559-4 (Version None)
Quarter: 2009Q2

REPORT INFORMATION
  Report Type: 
  Country: None (occurrence: None)
  Receive Date: 20090427
  Receipt Date: 20090422
  Transmission Date: 20091009
  Serious: Yes (Hospitalization)
  Sender: FDA-Public Use
  Company Number: US-BRISTOL-MYERS SQUIBB COMPANY-14589345

PATIENT
  Age: 56 Year
  Sex: Female
  Weight: 71 kg

DRUGS (16)
  1. CETUXIMAB [Suspect]
     Indication: BLADDER TRANSITIONAL CELL CARCINOMA
     Dosage: STARTED ON 04FEB2009 D 1+15 OF 28D CYC
     Dates: start: 20090304, end: 20090304
  2. GEMCITABINE [Suspect]
     Indication: BLADDER TRANSITIONAL CELL CARCINOMA
     Dosage: D1,15+21 OF 28D CYCLE STARTED ON 04FEB2009
     Dates: start: 20090311, end: 20090311
  3. CALCIUM + VITAMIN D [Concomitant]
     Dosage: 1DF - 500MG/200U
     Route: 048
  4. COLACE [Concomitant]
     Route: 048
  5. COMPAZINE [Concomitant]
     Dosage: Q6-8 HOUR
     Route: 048
  6. DEXAMETHASONE [Concomitant]
     Indication: NAUSEA
     Dosage: BID
     Route: 048
  7. EMEND [Concomitant]
     Dosage: EMEND BIFOLD PACK.DAY 2 + 3 OF CHEMO
     Route: 048
  8. EMLA [Concomitant]
     Dosage: EMLA CREAM APPLY 30 MIN PRIOR TO ACESS
  9. FENTANYL TRANSDERMAL SYSTEM [Concomitant]
     Route: 062
  10. LORAZEPAM [Concomitant]
     Dosage: 1DF = 0.5MG TABS, 1 TO 2 TABS, Q4-6H
     Route: 048
  11. MINOCYCLINE HCL [Concomitant]
     Route: 048
  12. ONDANSETRON HCL [Concomitant]
     Dosage: 1DF = 4 - 8 MG
     Route: 048
  13. OXYCODONE HCL [Concomitant]
     Indication: PAIN
     Dosage: 1DF = 5-10MG, Q4H
     Route: 048
  14. MIRALAX [Concomitant]
     Route: 048
  15. PRILOSEC [Concomitant]
     Route: 048
  16. REGLAN [Concomitant]
     Route: 048

REACTIONS (3)
  - DEEP VEIN THROMBOSIS [None]
  - NEUTROPENIA [None]
  - PULMONARY EMBOLISM [None]
